FAERS Safety Report 6879334-7 (Version None)
Quarter: 2010Q3

REPORT INFORMATION
  Report Type: 
  Country: None (occurrence: None)
  Receive Date: 20100728
  Receipt Date: 20100715
  Transmission Date: 20110219
  Serious: Yes (Hospitalization)
  Sender: FDA-Public Use
  Company Number: FR-JNJFOC-20100707467

PATIENT
  Sex: Male

DRUGS (12)
  1. IXPRIM [Suspect]
     Indication: MUSCULOSKELETAL CHEST PAIN
     Route: 048
  2. VIRLIX [Suspect]
     Indication: PRODUCT USED FOR UNKNOWN INDICATION
     Route: 048
  3. XATRAL [Suspect]
     Indication: PRODUCT USED FOR UNKNOWN INDICATION
     Route: 048
  4. ZOPICLONE [Suspect]
     Indication: INSOMNIA
     Route: 048
  5. XANAX [Suspect]
     Indication: ANXIETY
     Route: 048
  6. DAFALGAN CODEINE [Suspect]
     Indication: PAIN
     Route: 048
  7. LOPERAMIDE [Suspect]
     Indication: PRODUCT USED FOR UNKNOWN INDICATION
     Route: 048
  8. ESCITALOPRAM OXALATE [Suspect]
     Indication: PRODUCT USED FOR UNKNOWN INDICATION
     Route: 048
  9. COAPROVEL [Suspect]
     Indication: PRODUCT USED FOR UNKNOWN INDICATION
     Route: 048
  10. GLUCOR [Concomitant]
     Route: 065
  11. PREVISCAN (FLUINDIONE) [Concomitant]
     Route: 065
  12. PARACETAMOL [Concomitant]
     Route: 065

REACTIONS (2)
  - RENAL FAILURE ACUTE [None]
  - SOMNOLENCE [None]
